FAERS Safety Report 7510642-2 (Version None)
Quarter: 2011Q2

REPORT INFORMATION
  Report Type: 
  Country: None (occurrence: None)
  Receive Date: 20110530
  Receipt Date: 20110516
  Transmission Date: 20111010
  Serious: Yes (Other)
  Sender: FDA-Public Use
  Company Number: PHHY2011JP43136

PATIENT
  Sex: Male

DRUGS (15)
  1. METHYLPREDNISOLONE SODIUM SUCCINATE [Suspect]
     Dosage: 80 MG
     Route: 042
     Dates: start: 20071007, end: 20071007
  2. RABEPRAZOLE SODIUM [Concomitant]
     Indication: PROPHYLAXIS AGAINST GASTROINTESTINAL ULCER
     Dosage: 10 MG
     Route: 048
     Dates: start: 20070909
  3. SIMULECT [Suspect]
     Indication: RENAL TRANSPLANT
     Dosage: 20 MG
     Route: 042
     Dates: start: 20070907, end: 20070907
  4. MEDROL [Concomitant]
     Indication: RENAL TRANSPLANT
     Route: 048
     Dates: start: 20070913
  5. OLMESARTAN MEDOXOMIL [Concomitant]
     Indication: HYPERTENSION
     Dosage: 10 MG
     Route: 048
     Dates: start: 20070909, end: 20070929
  6. NEORAL [Suspect]
     Indication: RENAL TRANSPLANT
     Dosage: 350 MG, UNK
     Route: 048
     Dates: start: 20070829, end: 20071015
  7. METHYLPREDNISOLONE SODIUM SUCCINATE [Suspect]
     Indication: RENAL TRANSPLANT
     Dosage: 500 MG
     Route: 042
     Dates: start: 20070907, end: 20070912
  8. METHYLPREDNISOLONE SODIUM SUCCINATE [Suspect]
     Dosage: 80 MG
     Route: 042
     Dates: start: 20071006, end: 20071006
  9. METHYLPREDNISOLONE SODIUM SUCCINATE [Suspect]
     Dosage: 250 MG
     Route: 042
     Dates: start: 20071003, end: 20071004
  10. SIMULECT [Suspect]
     Dosage: 20 MG
     Route: 042
     Dates: start: 20070911, end: 20070911
  11. METHYLPREDNISOLONE SODIUM SUCCINATE [Suspect]
     Dosage: 125 MG
     Route: 042
     Dates: start: 20071005, end: 20071005
  12. CELLCEPT [Concomitant]
     Indication: RENAL TRANSPLANT
     Route: 048
     Dates: start: 20070829
  13. PROGRAF [Concomitant]
     Indication: RENAL TRANSPLANT
     Route: 048
     Dates: start: 20071016
  14. RITUXAN [Concomitant]
     Indication: IMMUNE TOLERANCE INDUCTION
     Dosage: 500 MG
     Route: 042
     Dates: start: 20070828, end: 20070828
  15. TOWARAT [Concomitant]
     Indication: HYPERTENSION
     Dosage: 20 MG
     Route: 048
     Dates: start: 20070910, end: 20070924

REACTIONS (2)
  - CYTOMEGALOVIRUS VIRAEMIA [None]
  - KIDNEY TRANSPLANT REJECTION [None]
